FAERS Safety Report 17173157 (Version 1)
Quarter: 2019Q4

REPORT INFORMATION
  Report Type: Spontaneous
  Country: US (occurrence: US)
  Receive Date: 20191218
  Receipt Date: 20191218
  Transmission Date: 20200122
  Serious: No
  Sender: FDA-Public Use
  Company Number: US-009507513-1912USA008509

PATIENT
  Sex: Female

DRUGS (2)
  1. FOSAMAX [Suspect]
     Active Substance: ALENDRONATE SODIUM
     Route: 048
  2. CALCIUM (UNSPECIFIED) [Interacting]
     Active Substance: CALCIUM

REACTIONS (3)
  - Anticonvulsant drug level increased [Unknown]
  - Anticonvulsant drug level decreased [Unknown]
  - Drug interaction [Unknown]
